FAERS Safety Report 9792616 (Version 1)
Quarter: 2014Q1

REPORT INFORMATION
  Report Type: Spontaneous
  Country: US (occurrence: US)
  Receive Date: 20140102
  Receipt Date: 20140102
  Transmission Date: 20141002
  Serious: No
  Sender: FDA-Public Use
  Company Number: US-SA-2013SA101294

PATIENT
  Age: 29 Year
  Sex: Female

DRUGS (3)
  1. AUBAGIO [Suspect]
     Route: 048
     Dates: start: 20130401
  2. IBUPROFEN [Concomitant]
     Route: 048
     Dates: start: 20110512
  3. OBETROL [Concomitant]
     Route: 048
     Dates: start: 20121127

REACTIONS (1)
  - Alopecia [Unknown]
